FAERS Safety Report 7474855-0 (Version None)
Quarter: 2011Q2

REPORT INFORMATION
  Report Type: 
  Country: None (occurrence: None)
  Receive Date: 20110512
  Receipt Date: 20110120
  Transmission Date: 20111010
  Serious: Yes (Hospitalization, Disabling, Other)
  Sender: FDA-Public Use
  Company Number: US-BAYER-201038390NA

PATIENT
  Age: 37 Year
  Sex: Female

DRUGS (4)
  1. TYLENOL 1 [Concomitant]
  2. YASMIN [Suspect]
     Indication: ACNE
  3. HYPNOTICS AND SEDATIVES [Concomitant]
  4. HERBAL PREPARATION [Concomitant]

REACTIONS (5)
  - MIGRAINE [None]
  - EMBOLIC STROKE [None]
  - ANXIETY [None]
  - INJURY [None]
  - MENTAL DISORDER [None]
